FAERS Safety Report 8834965 (Version 1)
Quarter: 2012Q4

REPORT INFORMATION
  Report Type: Spontaneous
  Country: US (occurrence: None)
  Receive Date: 20121009
  Receipt Date: 20121009
  Transmission Date: 20130627
  Serious: Yes (Other)
  Sender: FDA-Public Use
  Company Number: 2012SA070431

PATIENT
  Age: 39 Year
  Sex: Male

DRUGS (1)
  1. PYRITHIONE ZINC [Suspect]
     Dates: start: 2012, end: 2012

REACTIONS (1)
  - Blister [None]
